FAERS Safety Report 14384936 (Version 1)
Quarter: 2018Q1

REPORT INFORMATION
  Report Type: Spontaneous
  Country: US (occurrence: US)
  Receive Date: 20180115
  Receipt Date: 20180115
  Transmission Date: 20180509
  Serious: No
  Sender: FDA-Public Use
  Company Number: US-BIOVERATIV-2017BV000455

PATIENT
  Age: 23 Year
  Sex: Male

DRUGS (1)
  1. ALPROLIX [Suspect]
     Active Substance: EFTRENONACOG ALFA
     Indication: HAEMOPHILIA
     Dosage: SINGLE DOSE RECEIVED, ONE TIME, IN RESPONSE TO THE EVENT.
     Route: 042
     Dates: start: 20171124, end: 20171124

REACTIONS (2)
  - Haemorrhage [Recovered/Resolved]
  - Limb crushing injury [Recovered/Resolved]

NARRATIVE: CASE EVENT DATE: 20171123
